FAERS Safety Report 22187121 (Version 4)
Quarter: 2024Q3

REPORT INFORMATION
  Report Type: Report from Study
  Country: JP (occurrence: JP)
  Receive Date: 20230407
  Receipt Date: 20240702
  Transmission Date: 20241016
  Serious: Yes (Other)
  Sender: KYOWA
  Company Number: JP-KYOWAKIRIN-2023AKK004997

PATIENT

DRUGS (4)
  1. BUROSUMAB [Suspect]
     Active Substance: BUROSUMAB
     Indication: Hypophosphataemic osteomalacia
     Dosage: 20 MG, 1X/4 WEEKS
     Route: 058
     Dates: start: 20201210, end: 20210204
  2. BUROSUMAB [Suspect]
     Active Substance: BUROSUMAB
     Dosage: 10 MG, 1X/4 WEEKS
     Route: 058
     Dates: start: 20210304, end: 20210401
  3. BUROSUMAB [Suspect]
     Active Substance: BUROSUMAB
     Dosage: 10 MG, 1X/4 WEEKS
     Route: 058
     Dates: start: 20210506, end: 20210826
  4. BUROSUMAB [Suspect]
     Active Substance: BUROSUMAB
     Dosage: 10 MG, 1X/4 WEEKS
     Route: 058
     Dates: start: 20210930

REACTIONS (3)
  - Renal impairment [Recovered/Resolved]
  - Fractional excretion of phosphate [Recovered/Resolved]
  - Hyperphosphataemia [Recovered/Resolved]

NARRATIVE: CASE EVENT DATE: 20201217
